FAERS Safety Report 7149993-2 (Version None)
Quarter: 2010Q4

REPORT INFORMATION
  Report Type: 
  Country: None (occurrence: None)
  Receive Date: 20101210
  Receipt Date: 20101201
  Transmission Date: 20110411
  Serious: Yes (Hospitalization)
  Sender: FDA-Public Use
  Company Number: PE-SHIRE-SPV1-2010-02027

PATIENT
  Age: 12 Year
  Sex: Male

DRUGS (6)
  1. IDURSULFASE [Suspect]
     Indication: MUCOPOLYSACCHARIDOSIS II
     Dosage: 0.5 MG/KG, 1X/WEEK
     Route: 041
  2. VALPROIC ACID [Concomitant]
     Indication: CONVULSION
     Dosage: UNK
  3. LAMOTRIGINE [Concomitant]
     Indication: CONVULSION
     Dosage: UNK
  4. RISPERIDONE [Concomitant]
     Indication: PRODUCT USED FOR UNKNOWN INDICATION
     Dosage: UNK
     Route: 048
     Dates: start: 20040101
  5. FLIXOTIDE [Concomitant]
     Indication: ASTHMA
     Dosage: 0.25 MG, 2X/DAY:BID
     Dates: end: 20101108
  6. FLIXOTIDE [Concomitant]
     Indication: PNEUMONIA
     Dosage: 0.5 MG, 2X/DAY:BID
     Dates: start: 20101109

REACTIONS (6)
  - BRONCHIAL OBSTRUCTION [None]
  - BRONCHOSPASM [None]
  - COUGH [None]
  - PNEUMONIA [None]
  - PYREXIA [None]
  - RHINORRHOEA [None]
